FAERS Safety Report 21518454 (Version 2)
Quarter: 2023Q1

REPORT INFORMATION
  Report Type: Report from Study
  Country: BR (occurrence: BR)
  Receive Date: 20221028
  Receipt Date: 20230104
  Transmission Date: 20230417
  Serious: Yes (Other)
  Sender: FDA-Public Use
  Company Number: BR-NOVARTISPH-NVSC2021BR207228

PATIENT
  Age: 44 Year
  Sex: Female

DRUGS (6)
  1. COSENTYX [Suspect]
     Active Substance: SECUKINUMAB
     Indication: Psoriasis
     Dosage: 300 MG (2 PENS)
     Route: 065
     Dates: start: 20210721
  2. COSENTYX [Suspect]
     Active Substance: SECUKINUMAB
     Dosage: UNK
     Route: 065
     Dates: start: 20210728
  3. COSENTYX [Suspect]
     Active Substance: SECUKINUMAB
     Dosage: UNK
     Route: 065
     Dates: start: 20210804
  4. COSENTYX [Suspect]
     Active Substance: SECUKINUMAB
     Dosage: UNK
     Route: 065
     Dates: start: 20210811
  5. COSENTYX [Suspect]
     Active Substance: SECUKINUMAB
     Dosage: UNK
     Route: 065
     Dates: start: 20210818
  6. METHOTREXATE [Suspect]
     Active Substance: METHOTREXATE
     Indication: Product used for unknown indication
     Dosage: UNK
     Route: 065

REACTIONS (21)
  - Suicidal ideation [Unknown]
  - Heart rate increased [Unknown]
  - Stress [Unknown]
  - Anxiety [Recovering/Resolving]
  - Tremor [Unknown]
  - Malaise [Unknown]
  - Dyspnoea [Unknown]
  - Chest discomfort [Unknown]
  - Panic reaction [Unknown]
  - Nervousness [Unknown]
  - Social anxiety disorder [Unknown]
  - Psoriasis [Unknown]
  - Depression [Unknown]
  - Pain of skin [Unknown]
  - Skin discolouration [Recovering/Resolving]
  - Pruritus [Recovering/Resolving]
  - Skin exfoliation [Recovering/Resolving]
  - Skin lesion [Recovering/Resolving]
  - Erythema [Recovering/Resolving]
  - Drug ineffective [Unknown]
  - Therapeutic product effect incomplete [Unknown]
